FAERS Safety Report 5950981-X (Version None)
Quarter: 2008Q4

REPORT INFORMATION
  Report Type: 
  Country: None (occurrence: None)
  Receive Date: 20081110
  Receipt Date: 20081104
  Transmission Date: 20090506
  Serious: Yes (Death, Hospitalization)
  Sender: FDA-Public Use
  Company Number: 2008SP022021

PATIENT
  Age: 50 Year
  Sex: Male
  Weight: 87.9978 kg

DRUGS (16)
  1. PEG-INTRON [Suspect]
     Indication: HEPATITIS C
     Dosage: 150 MCG; SC
     Route: 058
     Dates: start: 20080519, end: 20081022
  2. RIBAVIRIN [Suspect]
     Indication: HEPATITIS C
     Dosage: 1200 MG; PO
     Route: 048
     Dates: start: 20080519, end: 20081022
  3. INVESTIGATIONAL DRUG [Suspect]
     Indication: HEPATITIS C
     Dosage: 435 MG; IV
     Route: 042
     Dates: start: 20080519, end: 20081020
  4. BACTRIM [Concomitant]
  5. CEPHALEXIN [Concomitant]
  6. MOTRIN [Concomitant]
  7. CHLORASEPTIC THROAT SPRAY [Concomitant]
  8. SPORTSCREAM [Concomitant]
  9. ADVIL [Concomitant]
  10. ISONIAZID [Concomitant]
  11. VITAMIN B6 [Concomitant]
  12. LEXAPRO [Concomitant]
  13. PHENERGAN HCL [Concomitant]
  14. DRAMAMINE [Concomitant]
  15. PEPTO-BISMOL [Concomitant]
  16. NEUPOGEN [Concomitant]

REACTIONS (29)
  - ABDOMINAL DISTENSION [None]
  - ABDOMINAL PAIN [None]
  - ACUTE HEPATIC FAILURE [None]
  - ARTHRALGIA [None]
  - BACK PAIN [None]
  - CARDIAC DISORDER [None]
  - CHRONIC HEPATIC FAILURE [None]
  - DIALYSIS [None]
  - ENCEPHALOPATHY [None]
  - FEELING ABNORMAL [None]
  - HAEMOGLOBIN DECREASED [None]
  - HEPATOMEGALY [None]
  - LOBAR PNEUMONIA [None]
  - LOSS OF CONSCIOUSNESS [None]
  - MOANING [None]
  - MYALGIA [None]
  - NAUSEA [None]
  - PANCREATITIS [None]
  - PLATELET COUNT DECREASED [None]
  - PLEURAL EFFUSION [None]
  - PULMONARY EMBOLISM [None]
  - RENAL FAILURE ACUTE [None]
  - RESPIRATORY DISTRESS [None]
  - RESPIRATORY FAILURE [None]
  - SEPTIC EMBOLUS [None]
  - SPLENOMEGALY [None]
  - VOMITING [None]
  - WHITE BLOOD CELL COUNT DECREASED [None]
  - WRONG DRUG ADMINISTERED [None]
